FAERS Safety Report 5203873-8 (Version None)
Quarter: 2007Q1

REPORT INFORMATION
  Report Type: 
  Country: None (occurrence: None)
  Receive Date: 20070110
  Receipt Date: 20061228
  Transmission Date: 20070707
  Serious: Yes (Hospitalization)
  Sender: FDA-Public Use
  Company Number: US-SHR-US-2006-026721

PATIENT
  Age: 67 Year
  Sex: Male
  Weight: 69.388 kg

DRUGS (14)
  1. CAMPATH 30 /1ML [Suspect]
     Indication: CHRONIC LYMPHOCYTIC LEUKAEMIA
     Dosage: 30 MG/DAY, D1-5 EVERY 28 DAYS
     Route: 058
     Dates: start: 20060710, end: 20060714
  2. CAMPATH 30 /1ML [Suspect]
     Dosage: 30 MG/DAY, D1-5 EVERY 28 DAYS
     Route: 058
     Dates: start: 20060821, end: 20060825
  3. FLUDARA [Suspect]
     Indication: CHRONIC LYMPHOCYTIC LEUKAEMIA
     Dosage: 44.8 MG/DAY, D1-5 EVERY 28 DAYS
     Route: 042
     Dates: start: 20060710, end: 20060714
  4. FLUDARA [Suspect]
     Dosage: 44.8 MG/DAY, D1-5 EVERY 28 DAYS
     Route: 042
     Dates: start: 20060821, end: 20060825
  5. DIOVAN HCT [Concomitant]
     Dosage: 25/160 MG 1X/DAY
     Route: 048
  6. AVANDIA [Concomitant]
     Indication: DIABETES MELLITUS
     Dosage: 4 MG, 1X/DAY
     Route: 048
  7. FAMVIR                                  /UNK/ [Concomitant]
     Dosage: 250 MG, 2X/DAY
     Route: 048
  8. BACTRIM DS [Concomitant]
     Dosage: 1 TAB(S), 2X/DAY, Q M-W-F
     Route: 048
  9. NOVOLOG [Concomitant]
     Indication: DIABETES MELLITUS
     Dosage: 15 UNITS 2X/DAY
     Route: 058
  10. SIMVASTATIN [Concomitant]
     Route: 048
  11. VANCOMYCIN [Concomitant]
  12. GENTAMICIN SULFATE [Concomitant]
  13. ROCEPHIN [Concomitant]
  14. ZOSYN [Concomitant]

REACTIONS (14)
  - ASTHENIA [None]
  - CARDIAC FAILURE CONGESTIVE [None]
  - CYTOMEGALOVIRUS ANTIBODY POSITIVE [None]
  - HAEMATOCRIT DECREASED [None]
  - ILEUS [None]
  - LOSS OF CONSCIOUSNESS [None]
  - LYMPHADENOPATHY [None]
  - MENTAL STATUS CHANGES [None]
  - PLEURAL EFFUSION [None]
  - RENAL FAILURE ACUTE [None]
  - RENAL TUBULAR NECROSIS [None]
  - SEPSIS [None]
  - SEPSIS SYNDROME [None]
  - SYNCOPE [None]
